FAERS Safety Report 7101127-6 (Version None)
Quarter: 2010Q4

REPORT INFORMATION
  Report Type: 
  Country: None (occurrence: None)
  Receive Date: 20101113
  Receipt Date: 20100723
  Transmission Date: 20110411
  Serious: Yes (Other)
  Sender: FDA-Public Use
  Company Number: US-ALLERGAN-1005555US

PATIENT
  Age: 50 Year
  Sex: Female
  Weight: 72.562 kg

DRUGS (7)
  1. BOTOX COSMETIC [Suspect]
     Indication: SKIN WRINKLING
     Dosage: 35 UNITS, SINGLE
     Route: 030
     Dates: start: 20100308, end: 20100308
  2. RESTYLANE [Suspect]
     Indication: SKIN WRINKLING
     Dosage: 0.4 ML, SINGLE
     Dates: start: 20100301, end: 20100301
  3. CRANBERRY [Concomitant]
  4. MULTI-VITAMIN [Concomitant]
  5. CLOBETASOL PROPIONATE [Concomitant]
  6. LOVAZA [Concomitant]
  7. VITAMIN D [Concomitant]

REACTIONS (1)
  - FOREIGN BODY REACTION [None]
